FAERS Safety Report 15371060 (Version 2)
Quarter: 2018Q3

REPORT INFORMATION
  Report Type: Spontaneous
  Country: AR (occurrence: AR)
  Receive Date: 20180911
  Receipt Date: 20180914
  Transmission Date: 20181010
  Serious: Yes (Other)
  Sender: FDA-Public Use
  Company Number: AR-GLAXOSMITHKLINE-AR2018GSK163302

PATIENT
  Age: 22 Year
  Sex: Female

DRUGS (1)
  1. BENLYSTA [Suspect]
     Active Substance: BELIMUMAB
     Indication: SYSTEMIC LUPUS ERYTHEMATOSUS
     Dosage: UNK
     Dates: start: 20160526

REACTIONS (7)
  - Aggression [Unknown]
  - Psychotic behaviour [Unknown]
  - Depression [Unknown]
  - Suicide attempt [Unknown]
  - Disturbance in attention [Unknown]
  - Intentional overdose [Unknown]
  - Intentional self-injury [Unknown]

NARRATIVE: CASE EVENT DATE: 201706
